FAERS Safety Report 11628434 (Version 1)
Quarter: 2015Q4

REPORT INFORMATION
  Report Type: Spontaneous
  Country: GB (occurrence: GB)
  Receive Date: 20151014
  Receipt Date: 20151014
  Transmission Date: 20160304
  Serious: Yes (Other)
  Sender: FDA-Public Use
  Company Number: GB-PFIZER INC-2015329253

PATIENT

DRUGS (1)
  1. XALKORI [Suspect]
     Active Substance: CRIZOTINIB
     Indication: NEOPLASM MALIGNANT
     Dosage: UNK
     Dates: start: 201308

REACTIONS (7)
  - Fatigue [Unknown]
  - Neoplasm malignant [Unknown]
  - Atrial flutter [Unknown]
  - Pericardial effusion [Unknown]
  - Partial seizures [Unknown]
  - Visual impairment [Unknown]
  - Disease progression [Unknown]

NARRATIVE: CASE EVENT DATE: 2013
